FAERS Safety Report 4587531-9 (Version None)
Quarter: 2005Q1

REPORT INFORMATION
  Report Type: 
  Country: None (occurrence: None)
  Receive Date: 20050125
  Receipt Date: 20040831
  Transmission Date: 20050727
  Serious: No
  Sender: FDA-Public Use
  Company Number: USA040977036

PATIENT
  Age: 81 Year
  Sex: Female

DRUGS (18)
  1. FORTEO [Suspect]
     Indication: OSTEOPOROSIS
     Dates: start: 20040825
  2. NEURONTIN [Concomitant]
  3. METHADONE [Concomitant]
  4. BENTYL [Concomitant]
  5. PREDNISONE [Concomitant]
  6. SYNTHROID [Concomitant]
  7. FUROSEMIDE [Concomitant]
  8. KLOR-CON [Concomitant]
  9. FOLIC ACID [Concomitant]
  10. MIRALAX [Concomitant]
  11. CITRICAL (CALCIUM CARBONATE) [Concomitant]
  12. BENADRYL [Concomitant]
  13. NEXIUM [Concomitant]
  14. MULTI-VITAMIN [Concomitant]
  15. VITAMIN B COMPLEX CAP [Concomitant]
  16. ACIDOPHILUS [Concomitant]
  17. LIBRAX [Concomitant]
  18. ULTRAM [Concomitant]

REACTIONS (2)
  - LOCAL SWELLING [None]
  - SWELLING FACE [None]
